FAERS Safety Report 13924958 (Version 2)
Quarter: 2018Q2

REPORT INFORMATION
  Report Type: Spontaneous
  Country: US (occurrence: US)
  Receive Date: 20170831
  Receipt Date: 20180628
  Transmission Date: 20180711
  Serious: Yes (Hospitalization, Other)
  Sender: FDA-Public Use
  Company Number: US-APOTEX-2017AP017519

PATIENT
  Age: 34 Year
  Sex: Male
  Weight: 60 kg

DRUGS (1)
  1. ACETAMINOPHEN. [Suspect]
     Active Substance: ACETAMINOPHEN
     Indication: PRODUCT USED FOR UNKNOWN INDICATION
     Dosage: 25 G, SINGLE
     Route: 048

REACTIONS (7)
  - Intentional overdose [Unknown]
  - Brain oedema [Recovering/Resolving]
  - Drug level increased [Unknown]
  - Tachycardia [Unknown]
  - Encephalopathy [Unknown]
  - Acute hepatic failure [Recovered/Resolved]
  - Hepatotoxicity [Recovering/Resolving]
